FAERS Safety Report 13457136 (Version 2)
Quarter: 2017Q2

REPORT INFORMATION
  Report Type: Spontaneous
  Country: FR (occurrence: FR)
  Receive Date: 20170419
  Receipt Date: 20170425
  Transmission Date: 20170830
  Serious: Yes (Hospitalization, Other)
  Sender: FDA-Public Use
  Company Number: FR-BRISTOL-MYERS SQUIBB COMPANY-BMS-2017-032762

PATIENT
  Age: 57 Year
  Sex: Male

DRUGS (4)
  1. OPDIVO [Suspect]
     Active Substance: NIVOLUMAB
     Indication: PRODUCT USED FOR UNKNOWN INDICATION
     Dosage: UNAVAILABLE
     Route: 065
  2. OPDIVO [Suspect]
     Active Substance: NIVOLUMAB
     Indication: METASTATIC BRONCHIAL CARCINOMA
     Dosage: 3 MG/KG,EVERY 15 DAYS
     Route: 042
     Dates: start: 20160801, end: 20170201
  3. CLAMOXYL                           /00249601/ [Concomitant]
     Active Substance: AMOXICILLIN
     Indication: URINARY TRACT INFECTION
     Route: 065
  4. REMICADE [Suspect]
     Active Substance: INFLIXIMAB
     Indication: METASTATIC BRONCHIAL CARCINOMA
     Route: 065

REACTIONS (2)
  - Colitis [Unknown]
  - Urinary tract infection [Unknown]

NARRATIVE: CASE EVENT DATE: 201702
